FAERS Safety Report 10839280 (Version 1)
Quarter: 2015Q1

REPORT INFORMATION
  Report Type: Report from Study
  Country: US (occurrence: US)
  Receive Date: 20150220
  Receipt Date: 20150220
  Transmission Date: 20150721
  Serious: No
  Sender: FDA-Public Use
  Company Number: US-ABBVIE-14P-163-1232895-00

PATIENT
  Age: 31 Year
  Sex: Female

DRUGS (7)
  1. IUD NOS [Suspect]
     Active Substance: COPPER OR LEVONORGESTREL
     Indication: PRODUCT USED FOR UNKNOWN INDICATION
     Route: 065
  2. LEFLUNOMIDE. [Suspect]
     Active Substance: LEFLUNOMIDE
     Indication: ARTHRALGIA
     Route: 065
  3. HUMIRA [Suspect]
     Active Substance: ADALIMUMAB
     Indication: PSORIASIS
     Route: 065
     Dates: start: 20140320
  4. NAPROXEN SODIUM. [Concomitant]
     Active Substance: NAPROXEN SODIUM
     Indication: ARTHRALGIA
     Dosage: BY MOUTH AS NEEDED
     Route: 048
     Dates: end: 201408
  5. HUMIRA [Suspect]
     Active Substance: ADALIMUMAB
     Indication: PRODUCT USED FOR UNKNOWN INDICATION
     Route: 065
  6. LEXAPRO [Suspect]
     Active Substance: ESCITALOPRAM OXALATE
     Indication: DEPRESSION
     Route: 065
     Dates: start: 201404, end: 201405
  7. HUMIRA [Suspect]
     Active Substance: ADALIMUMAB
     Route: 065
     Dates: start: 2014

REACTIONS (29)
  - Inappropriate schedule of drug administration [Recovered/Resolved]
  - Depression [Not Recovered/Not Resolved]
  - Psoriasis [Unknown]
  - Adverse event [Unknown]
  - Pain [Unknown]
  - Injection site pain [Not Recovered/Not Resolved]
  - Wrong technique in drug usage process [Unknown]
  - Fear of injection [Unknown]
  - Thinking abnormal [Not Recovered/Not Resolved]
  - Inflammation [Recovered/Resolved]
  - Infection [Unknown]
  - Fibromyalgia [Unknown]
  - Drug ineffective [Unknown]
  - Drug effect incomplete [Unknown]
  - Sinus congestion [Not Recovered/Not Resolved]
  - Inflammation [Recovered/Resolved]
  - Injection site discomfort [Not Recovered/Not Resolved]
  - Musculoskeletal stiffness [Not Recovered/Not Resolved]
  - Headache [Not Recovered/Not Resolved]
  - Influenza [Unknown]
  - Psoriasis [Recovering/Resolving]
  - Condition aggravated [Recovering/Resolving]
  - White blood cell count increased [Not Recovered/Not Resolved]
  - Bronchitis [Not Recovered/Not Resolved]
  - Nasopharyngitis [Unknown]
  - Anxiety [Not Recovered/Not Resolved]
  - Depression [Unknown]
  - Pain in extremity [Not Recovered/Not Resolved]
  - Arthralgia [Not Recovered/Not Resolved]

NARRATIVE: CASE EVENT DATE: 2014
